FAERS Safety Report 7629508-2 (Version None)
Quarter: 2011Q3

REPORT INFORMATION
  Report Type: 
  Country: None (occurrence: None)
  Receive Date: 20110722
  Receipt Date: 20110719
  Transmission Date: 20111222
  Serious: Yes (Hospitalization, Other)
  Sender: FDA-Public Use
  Company Number: DE-ACTELION-A-CH2011-48820

PATIENT
  Sex: Female
  Weight: 66 kg

DRUGS (6)
  1. TRACLEER [Suspect]
     Indication: PULMONARY ARTERIAL HYPERTENSION
     Dosage: 62.5 MG, BID
     Route: 048
     Dates: start: 20100906, end: 20110404
  2. SPIRIVA [Concomitant]
  3. FALITHROM [Concomitant]
  4. TORSEMIDE [Concomitant]
  5. LOSARTAN POTASSIUM [Concomitant]
  6. OXYGEN [Concomitant]

REACTIONS (7)
  - LIVER FUNCTION TEST ABNORMAL [None]
  - BLOOD ALKALINE PHOSPHATASE [None]
  - BILIRUBIN CONJUGATED INCREASED [None]
  - ALANINE AMINOTRANSFERASE INCREASED [None]
  - ASPARTATE AMINOTRANSFERASE INCREASED [None]
  - BLOOD BILIRUBIN [None]
  - BLOOD CHOLINESTERASE [None]
